FAERS Safety Report 4767490-6 (Version None)
Quarter: 2005Q3

REPORT INFORMATION
  Report Type: 
  Country: None (occurrence: None)
  Receive Date: 20050912
  Receipt Date: 20050829
  Transmission Date: 20060218
  Serious: Yes (Hospitalization)
  Sender: FDA-Public Use
  Company Number: 2005121037

PATIENT
  Age: 58 Year
  Sex: Female

DRUGS (2)
  1. BENADRYL CREAM EXTRA STRENGTH (DIPENHYDRAMINE, ZINC ACETATE) [Suspect]
     Indication: ARTHROPOD STING
     Dosage: SMALL AMOUNT ONCE, TOPICAL
     Route: 061
     Dates: start: 20050829, end: 20050829
  2. GENERAL NUTRIENTS (GENERAL NUTRIENTS) [Concomitant]

REACTIONS (1)
  - AMNESIA [None]
